FAERS Safety Report 13679650 (Version 1)
Quarter: 2017Q2

REPORT INFORMATION
  Report Type: Spontaneous
  Country: ES (occurrence: ES)
  Receive Date: 20170622
  Receipt Date: 20170622
  Transmission Date: 20170830
  Serious: Yes (Hospitalization)
  Sender: FDA-Public Use
  Company Number: ES-PFIZER INC-2017265790

PATIENT
  Age: 29 Year
  Sex: Female

DRUGS (3)
  1. DOSTINEX [Suspect]
     Active Substance: CABERGOLINE
     Indication: HYPERPROLACTINAEMIA
     Dosage: 0.25 MG, WEEKLY
     Route: 048
     Dates: start: 201512, end: 20170403
  2. DROSURELLE [Suspect]
     Active Substance: DROSPIRENONE
     Indication: ORAL CONTRACEPTION
     Dosage: 1 DF, 1X/DAY (0.02 MG/ 3 MG)
     Route: 048
     Dates: start: 20151026, end: 20170529
  3. DOSTINEX [Suspect]
     Active Substance: CABERGOLINE
     Dosage: 0.25 MG, WEEKLY
     Route: 048
     Dates: start: 201705

REACTIONS (6)
  - Pulmonary embolism [Recovered/Resolved]
  - Urinary tract infection [Unknown]
  - Dizziness [None]
  - Pulmonary hypertension [Recovering/Resolving]
  - Decreased activity [None]
  - Dyspnoea exertional [Recovered/Resolved]

NARRATIVE: CASE EVENT DATE: 201609
